FAERS Safety Report 16048439 (Version 7)
Quarter: 2021Q1

REPORT INFORMATION
  Report Type: Report from Study
  Country: JP (occurrence: JP)
  Receive Date: 20190307
  Receipt Date: 20210220
  Transmission Date: 20210419
  Serious: Yes (Hospitalization, Other)
  Sender: FDA-Public Use
  Company Number: JP-TAKEDA-2019TUS012145

PATIENT
  Age: 75 Year
  Sex: Male
  Weight: 60 kg

DRUGS (61)
  1. PONATINIB [Suspect]
     Active Substance: PONATINIB
     Dosage: 30 MILLIGRAM, QD
     Route: 048
     Dates: start: 20180404, end: 20180417
  2. TEGRETOL [Suspect]
     Active Substance: CARBAMAZEPINE
     Indication: HEADACHE
     Dosage: UNK
     Route: 065
  3. LYRICA [Suspect]
     Active Substance: PREGABALIN
     Indication: SOMATIC SYMPTOM DISORDER
  4. METHOTREXATE. [Suspect]
     Active Substance: METHOTREXATE
     Dosage: UNK
     Route: 024
     Dates: start: 20190624, end: 20190624
  5. METHOTREXATE. [Suspect]
     Active Substance: METHOTREXATE
     Dosage: UNK
     Route: 024
     Dates: start: 20180607
  6. METHOTREXATE. [Suspect]
     Active Substance: METHOTREXATE
     Dosage: UNK
     Route: 024
     Dates: start: 20190620, end: 20190622
  7. CYTARABINE. [Suspect]
     Active Substance: CYTARABINE
     Dosage: UNK
     Route: 024
     Dates: start: 20180509
  8. CYTARABINE. [Suspect]
     Active Substance: CYTARABINE
     Dosage: UNK
     Route: 024
     Dates: start: 20180719
  9. CYTARABINE. [Suspect]
     Active Substance: CYTARABINE
     Dosage: UNK
     Route: 024
     Dates: start: 20190618, end: 20190618
  10. CYTARABINE. [Suspect]
     Active Substance: CYTARABINE
     Dosage: UNK
     Route: 024
     Dates: start: 20191118, end: 20191118
  11. PREDNISOLONE. [Suspect]
     Active Substance: PREDNISOLONE
     Dosage: UNK
     Route: 024
     Dates: start: 20180524
  12. PREDNISOLONE. [Suspect]
     Active Substance: PREDNISOLONE
     Dosage: UNK
     Route: 024
     Dates: start: 20190718, end: 20190718
  13. PREDNISOLONE. [Suspect]
     Active Substance: PREDNISOLONE
     Dosage: UNK
     Route: 024
     Dates: start: 20191118, end: 20191118
  14. METHOTREXATE. [Suspect]
     Active Substance: METHOTREXATE
     Dosage: UNK
     Route: 024
     Dates: start: 20180524
  15. METHOTREXATE. [Suspect]
     Active Substance: METHOTREXATE
     Dosage: UNK
     Route: 024
     Dates: start: 20190618, end: 20190618
  16. CYTARABINE. [Suspect]
     Active Substance: CYTARABINE
     Dosage: UNK
     Route: 024
     Dates: start: 20180705
  17. CYTARABINE. [Suspect]
     Active Substance: CYTARABINE
     Dosage: UNK
     Route: 024
     Dates: start: 20191126, end: 20191126
  18. PREDNISOLONE. [Suspect]
     Active Substance: PREDNISOLONE
     Dosage: UNK
     Route: 024
     Dates: start: 20180607
  19. PREDNISOLONE. [Suspect]
     Active Substance: PREDNISOLONE
     Dosage: UNK
     Route: 024
     Dates: start: 20180802, end: 20180802
  20. PONATINIB [Suspect]
     Active Substance: PONATINIB
     Dosage: 45 MILLIGRAM, QD
     Route: 048
     Dates: start: 20180418, end: 20190702
  21. METHOTREXATE. [Suspect]
     Active Substance: METHOTREXATE
     Dosage: UNK
     Route: 024
     Dates: start: 20180621
  22. METHOTREXATE. [Suspect]
     Active Substance: METHOTREXATE
     Dosage: UNK
     Route: 024
     Dates: start: 20191126, end: 20191126
  23. CYTARABINE. [Suspect]
     Active Substance: CYTARABINE
     Dosage: UNK
     Route: 024
     Dates: start: 20180802, end: 20180802
  24. CYTARABINE. [Suspect]
     Active Substance: CYTARABINE
     Dosage: UNK
     Route: 024
     Dates: start: 20190718, end: 20190718
  25. PREDNISOLONE. [Suspect]
     Active Substance: PREDNISOLONE
     Dosage: UNK
     Route: 024
     Dates: start: 20180621
  26. PREDNISOLONE. [Suspect]
     Active Substance: PREDNISOLONE
     Dosage: UNK
     Route: 024
     Dates: start: 20180705
  27. PREDNISOLONE. [Suspect]
     Active Substance: PREDNISOLONE
     Dosage: UNK
     Route: 024
     Dates: start: 20180719
  28. PREDNISOLONE. [Suspect]
     Active Substance: PREDNISOLONE
     Dosage: UNK
     Route: 024
     Dates: start: 20190618, end: 20190618
  29. PREDNISOLONE. [Suspect]
     Active Substance: PREDNISOLONE
     Dosage: UNK
     Route: 024
     Dates: start: 20191126, end: 20191126
  30. BAYASPIRIN [Concomitant]
     Active Substance: ASPIRIN
     Indication: PROPHYLAXIS
     Dosage: UNK
     Route: 065
     Dates: start: 20180524, end: 20190702
  31. PONATINIB [Suspect]
     Active Substance: PONATINIB
     Dosage: 15 MILLIGRAM, QD
     Route: 048
     Dates: start: 20180320, end: 20180403
  32. LYRICA [Suspect]
     Active Substance: PREGABALIN
     Indication: HEADACHE
     Dosage: UNK
     Route: 065
  33. CONTOMIN                           /00011907/ [Suspect]
     Active Substance: CHLORPROMAZINE HIBENZATE
     Indication: PRODUCT USED FOR UNKNOWN INDICATION
     Dosage: UNK
     Route: 065
  34. METHOTREXATE. [Suspect]
     Active Substance: METHOTREXATE
     Dosage: UNK
     Route: 024
     Dates: start: 20180719
  35. METHOTREXATE. [Suspect]
     Active Substance: METHOTREXATE
     Dosage: UNK
     Route: 024
     Dates: start: 20180802, end: 20180802
  36. METHOTREXATE. [Suspect]
     Active Substance: METHOTREXATE
     Dosage: UNK
     Route: 024
     Dates: start: 20191203, end: 20191203
  37. CYTARABINE. [Suspect]
     Active Substance: CYTARABINE
     Dosage: UNK
     Route: 024
     Dates: start: 20191112, end: 20191112
  38. PREDNISOLONE. [Suspect]
     Active Substance: PREDNISOLONE
     Dosage: UNK
     Route: 024
     Dates: start: 20180502, end: 20180509
  39. METHOTREXATE. [Suspect]
     Active Substance: METHOTREXATE
     Dosage: UNK
     Route: 024
     Dates: start: 20191118, end: 20191118
  40. CYTARABINE. [Suspect]
     Active Substance: CYTARABINE
     Indication: CENTRAL NERVOUS SYSTEM LEUKAEMIA
     Dosage: UNK
     Route: 024
     Dates: start: 20180502
  41. METHOTREXATE. [Suspect]
     Active Substance: METHOTREXATE
     Indication: CENTRAL NERVOUS SYSTEM LEUKAEMIA
     Dosage: UNK
     Route: 024
     Dates: start: 20180502
  42. METHOTREXATE. [Suspect]
     Active Substance: METHOTREXATE
     Dosage: UNK
     Route: 024
     Dates: start: 20180705
  43. METHOTREXATE. [Suspect]
     Active Substance: METHOTREXATE
     Dosage: UNK
     Route: 024
     Dates: start: 20191112, end: 20191112
  44. CYTARABINE. [Suspect]
     Active Substance: CYTARABINE
     Dosage: UNK
     Route: 024
     Dates: start: 20180621
  45. CYTARABINE. [Suspect]
     Active Substance: CYTARABINE
     Dosage: UNK
     Route: 024
     Dates: start: 20190620, end: 20190622
  46. PREDNISOLONE. [Suspect]
     Active Substance: PREDNISOLONE
     Indication: CENTRAL NERVOUS SYSTEM LEUKAEMIA
     Dosage: UNK
     Route: 024
     Dates: start: 20190624, end: 20190624
  47. PREDNISOLONE. [Suspect]
     Active Substance: PREDNISOLONE
     Dosage: UNK
     Route: 024
     Dates: start: 20191112, end: 20191112
  48. PREDNISOLONE. [Suspect]
     Active Substance: PREDNISOLONE
     Dosage: UNK
     Route: 024
     Dates: start: 20191203, end: 20191203
  49. BAYASPIRIN [Concomitant]
     Active Substance: ASPIRIN
     Dosage: UNK
     Route: 065
     Dates: start: 20190910
  50. PONATINIB [Suspect]
     Active Substance: PONATINIB
     Dosage: 45 MILLIGRAM, QD
     Route: 048
     Dates: start: 20190910
  51. METHOTREXATE. [Suspect]
     Active Substance: METHOTREXATE
     Dosage: UNK
     Route: 024
     Dates: start: 20190718, end: 20190718
  52. CYTARABINE. [Suspect]
     Active Substance: CYTARABINE
     Dosage: UNK
     Route: 024
     Dates: start: 20180524
  53. CYTARABINE. [Suspect]
     Active Substance: CYTARABINE
     Dosage: UNK
     Route: 024
     Dates: start: 20180607
  54. CYTARABINE. [Suspect]
     Active Substance: CYTARABINE
     Dosage: UNK
     Route: 024
     Dates: start: 20191203, end: 20191203
  55. PONATINIB [Suspect]
     Active Substance: PONATINIB
     Indication: CHRONIC MYELOID LEUKAEMIA
     Dosage: 45 MILLIGRAM, QD
     Route: 048
     Dates: start: 20180126, end: 20180314
  56. METHOTREXATE. [Suspect]
     Active Substance: METHOTREXATE
     Dosage: UNK
     Route: 024
     Dates: start: 20180509
  57. METHOTREXATE. [Suspect]
     Active Substance: METHOTREXATE
     Dosage: UNK
     Route: 024
     Dates: start: 20191225, end: 20191227
  58. METHOTREXATE. [Suspect]
     Active Substance: METHOTREXATE
     Dosage: UNK
     Route: 024
     Dates: start: 20180524
  59. METHOTREXATE. [Suspect]
     Active Substance: METHOTREXATE
     Dosage: UNK
     Route: 024
     Dates: start: 20180502
  60. CYTARABINE. [Suspect]
     Active Substance: CYTARABINE
     Dosage: UNK
     Route: 024
     Dates: start: 20190624, end: 20190624
  61. CYTARABINE. [Suspect]
     Active Substance: CYTARABINE
     Dosage: UNK
     Route: 024
     Dates: start: 20191225, end: 20191227

REACTIONS (14)
  - Pneumonia pneumococcal [Recovered/Resolved]
  - Platelet count decreased [Recovered/Resolved]
  - Central nervous system leukaemia [Recovering/Resolving]
  - Neutrophil count decreased [Recovered/Resolved]
  - Herpes zoster [Recovered/Resolved]
  - Listeraemia [Recovered/Resolved]
  - Gamma-glutamyltransferase increased [Recovered/Resolved]
  - Anaemia [Recovered/Resolved]
  - Headache [Recovered/Resolved]
  - Large intestinal ulcer [Recovering/Resolving]
  - Hepatic function abnormal [Recovered/Resolved]
  - Somatic symptom disorder [Recovered/Resolved]
  - Urinary retention [Not Recovered/Not Resolved]
  - Eczema asteatotic [Recovered/Resolved]

NARRATIVE: CASE EVENT DATE: 20180209
